FAERS Safety Report 7797337-5 (Version None)
Quarter: 2011Q4

REPORT INFORMATION
  Report Type: 
  Country: None (occurrence: None)
  Receive Date: 20111005
  Receipt Date: 20110930
  Transmission Date: 20120403
  Serious: Yes (Hospitalization)
  Sender: FDA-Public Use
  Company Number: FR-SANOFI-AVENTIS-2011SA064100

PATIENT
  Age: 68 Year
  Sex: Female

DRUGS (2)
  1. INDAPAMIDE [Suspect]
     Route: 048
     Dates: start: 20110701, end: 20110825
  2. DISOPYRAMIDE PHOSPHATE [Concomitant]

REACTIONS (4)
  - HYPONATRAEMIA [None]
  - TONSILLITIS [None]
  - AMNESIA [None]
  - DIZZINESS [None]
